FAERS Safety Report 7540735-5 (Version None)
Quarter: 2011Q2

REPORT INFORMATION
  Report Type: 
  Country: None (occurrence: None)
  Receive Date: 20110610
  Receipt Date: 20110531
  Transmission Date: 20111010
  Serious: Yes (Hospitalization)
  Sender: FDA-Public Use
  Company Number: DE-GENENTECH-319613

PATIENT
  Age: 51 Year
  Sex: Female
  Weight: 46.8 kg

DRUGS (7)
  1. RITUXIMAB [Suspect]
     Indication: B-CELL LYMPHOMA
     Dosage: FREQUENCY: ALL THREE WEEKS. FORM: INFUSION
     Route: 042
     Dates: start: 20110515
  2. PANTOPRAZOLE [Concomitant]
     Dosage: UNK
     Dates: start: 20110517
  3. TILIDINE [Concomitant]
     Dosage: UNK
  4. CYCLOPHOSPHAMIDE [Suspect]
     Indication: B-CELL LYMPHOMA
     Dosage: FREQUENCY: ALL THREE WEEKS. FORM: INFUSION
     Route: 042
     Dates: start: 20110516
  5. DOXORUBICIN HCL [Suspect]
     Indication: B-CELL LYMPHOMA
     Dosage: FREQUENCY: ALL THREE WEEKS. FORM: INFUSION.
     Route: 042
     Dates: start: 20110516
  6. VINCRISTINE [Suspect]
     Indication: B-CELL LYMPHOMA
     Dosage: FREQUENCY: ALL THREE WEEKS. FORM: BOLUS
     Route: 042
     Dates: start: 20110516
  7. PREDNISONE [Suspect]
     Indication: B-CELL LYMPHOMA
     Dosage: FREQUENCY: ALL THREE WEEKS.
     Route: 048
     Dates: start: 20110516

REACTIONS (1)
  - CONSTIPATION [None]
